FAERS Safety Report 23336333 (Version 1)
Quarter: 2023Q4

REPORT INFORMATION
  Report Type: Report from Study
  Country: CO (occurrence: CO)
  Receive Date: 20231225
  Receipt Date: 20231225
  Transmission Date: 20240109
  Serious: Yes (Other)
  Sender: FDA-Public Use
  Company Number: CO-ABBVIE-5556906

PATIENT
  Age: 64 Year
  Sex: Female
  Weight: 66 kg

DRUGS (2)
  1. RINVOQ [Suspect]
     Active Substance: UPADACITINIB
     Indication: Rheumatoid arthritis
     Dosage: FORM STRENGTH: 15 MILLIGRAM
     Route: 048
     Dates: start: 20220828
  2. AZITHROMYCIN [Suspect]
     Active Substance: AZITHROMYCIN
     Indication: Product used for unknown indication
     Route: 048
     Dates: start: 20231212, end: 20231214

REACTIONS (13)
  - Mouth haemorrhage [Unknown]
  - Decreased appetite [Unknown]
  - Choking sensation [Unknown]
  - Pain [Unknown]
  - Listless [Unknown]
  - Influenza [Unknown]
  - Urinary tract infection [Not Recovered/Not Resolved]
  - Chest pain [Unknown]
  - Pyrexia [Unknown]
  - Vulvovaginal dryness [Not Recovered/Not Resolved]
  - Discouragement [Unknown]
  - Epistaxis [Unknown]
  - Asphyxia [Unknown]

NARRATIVE: CASE EVENT DATE: 20231201
